FAERS Safety Report 9002272 (Version 2)
Quarter: 2013Q1

REPORT INFORMATION
  Report Type: Spontaneous
  Country: US (occurrence: US)
  Receive Date: 20130107
  Receipt Date: 20130121
  Transmission Date: 20140127
  Serious: Yes (Other)
  Sender: FDA-Public Use
  Company Number: US-PERRIGO-12US011131

PATIENT
  Sex: Female
  Weight: 104.31 kg

DRUGS (3)
  1. DIPHENHYDRAMINE HYDROCHLORIDE [Suspect]
     Indication: INSOMNIA
     Dosage: 150 TO 625 MG, QD
     Route: 048
     Dates: start: 199907, end: 20121225
  2. GEODON [Concomitant]
     Indication: BIPOLAR DISORDER
     Dosage: UNK, UNK
     Route: 048
  3. AMBIEN [Concomitant]
     Indication: INSOMNIA
     Dosage: UNK, UNK
     Route: 048
     Dates: start: 201206

REACTIONS (4)
  - Overdose [Recovered/Resolved]
  - Amnesia [Recovered/Resolved]
  - Abdominal pain upper [Recovered/Resolved]
  - Off label use [Unknown]
